FAERS Safety Report 10050256 (Version 1)
Quarter: 2014Q2

REPORT INFORMATION
  Report Type: Spontaneous
  Country: FR (occurrence: FR)
  Receive Date: 20140401
  Receipt Date: 20140401
  Transmission Date: 20141212
  Serious: Yes (Hospitalization)
  Sender: FDA-Public Use
  Company Number: PHHY2014FR036406

PATIENT
  Age: 49 Year
  Sex: Female

DRUGS (2)
  1. PAROXETINE SANDOZ [Suspect]
     Route: 048
     Dates: start: 20140228
  2. ALPRAZOLAM SANDOZ [Suspect]
     Route: 048
     Dates: start: 20140228

REACTIONS (2)
  - Coma [Recovered/Resolved]
  - Convulsion [Recovering/Resolving]
